FAERS Safety Report 4501773-X (Version None)
Quarter: 2004Q3

REPORT INFORMATION
  Report Type: 
  Country: None (occurrence: None)
  Receive Date: 20040928
  Receipt Date: 20040607
  Transmission Date: 20050211
  Serious: No
  Sender: FDA-Public Use
  Company Number: 04P-163-0261071-00

PATIENT
  Age: 57 Year
  Sex: Female
  Weight: 80.7403 kg

DRUGS (8)
  1. HUMIRA [Suspect]
     Indication: RHEUMATOID ARTHRITIS
     Dosage: 40 MG, 1 IN 2 WK, SUBCUTANEOUS
     Route: 058
     Dates: start: 20040301, end: 20040426
  2. PREDNISONE [Concomitant]
  3. ALENDRONATE SODIUM [Concomitant]
  4. ONE A DAY [Concomitant]
  5. PAROXETINE HYDROCHLORIDE [Concomitant]
  6. BUDESONIDE [Concomitant]
  7. CYCLOBENZAPRINE HYDROCHLORIDE [Concomitant]
  8. CALCIUM CARBONATE [Concomitant]

REACTIONS (3)
  - BLOOD PRESSURE INCREASED [None]
  - DRUG INEFFECTIVE [None]
  - NAUSEA [None]
